FAERS Safety Report 6048730-2 (Version None)
Quarter: 2009Q1

REPORT INFORMATION
  Report Type: 
  Country: None (occurrence: None)
  Receive Date: 20090123
  Receipt Date: 20090112
  Transmission Date: 20090719
  Serious: Yes (Death, Other)
  Sender: FDA-Public Use
  Company Number: US-ROCHE-608679

PATIENT
  Age: 36 Year
  Sex: Female

DRUGS (10)
  1. CLONAZEPAM [Suspect]
     Indication: DRUG USE FOR UNKNOWN INDICATION
     Dosage: OVERDOSE; ROUTE REPORTED AS INGESTION
     Route: 048
  2. CLONAZEPAM [Suspect]
     Route: 048
  3. BUPROPION HCL [Suspect]
     Indication: DRUG USE FOR UNKNOWN INDICATION
     Dosage: OVERDOSE; ROUTE REPORTED AS INGESTION
     Route: 048
  4. BUPROPION HCL [Suspect]
     Route: 048
  5. CYCLOBENZAPRINE HCL [Suspect]
     Indication: DRUG USE FOR UNKNOWN INDICATION
     Dosage: OVERDOSE; ROUTE REPORTED AS INGESTION
     Route: 048
  6. CYCLOBENZAPRINE HCL [Suspect]
     Route: 048
  7. PROPRANOLOL [Suspect]
     Indication: DRUG USE FOR UNKNOWN INDICATION
     Dosage: OVERDOSE; ROUTE REPORTED AS INGESTION
     Route: 048
  8. PROPRANOLOL [Suspect]
     Route: 048
  9. ACETAMINOPHEN WITH PROPOXYPHENE HCL TAB [Suspect]
     Indication: DRUG USE FOR UNKNOWN INDICATION
     Dosage: OVERDOSE; ROUTE REPORTED AS INGESTION
     Route: 048
  10. ACETAMINOPHEN WITH PROPOXYPHENE HCL TAB [Suspect]
     Route: 048

REACTIONS (3)
  - CARDIAC ARREST [None]
  - COMPLETED SUICIDE [None]
  - RESPIRATORY ARREST [None]
